FAERS Safety Report 9702443 (Version 2)
Quarter: 2013Q4

REPORT INFORMATION
  Report Type: Spontaneous
  Country: US (occurrence: US)
  Receive Date: 20131121
  Receipt Date: 20131209
  Transmission Date: 20140711
  Serious: No
  Sender: FDA-Public Use
  Company Number: US-PFIZER INC-2013332204

PATIENT
  Age: 49 Year
  Sex: Male
  Weight: 58.96 kg

DRUGS (3)
  1. VIAGRA [Suspect]
     Indication: ERECTILE DYSFUNCTION
     Dosage: UNK, AS NEEDED
     Route: 048
     Dates: start: 201311, end: 201311
  2. IBUPROFEN [Concomitant]
     Indication: BACK PAIN
     Dosage: UNK, AS NEEDED
  3. LISINOPRIL [Concomitant]
     Dosage: UNK

REACTIONS (1)
  - Drug ineffective [Unknown]
